FAERS Safety Report 4859825-0 (Version None)
Quarter: 2005Q4

REPORT INFORMATION
  Report Type: 
  Country: None (occurrence: None)
  Receive Date: 20051219
  Receipt Date: 20051206
  Transmission Date: 20060501
  Serious: Yes (Death, Hospitalization)
  Sender: FDA-Public Use
  Company Number: FR-GLAXOSMITHKLINE-B0403531A

PATIENT
  Age: 38 Year
  Sex: Female
  Weight: 50 kg

DRUGS (10)
  1. FOSAMPRENAVIR [Suspect]
     Indication: HIV INFECTION
     Dosage: 700MG TWICE PER DAY
     Route: 048
     Dates: start: 20050515, end: 20050720
  2. NORVIR [Suspect]
     Indication: HIV INFECTION
     Dosage: 100MG TWICE PER DAY
     Route: 048
     Dates: start: 20050515, end: 20050720
  3. VIREAD [Suspect]
     Indication: HIV INFECTION
     Dosage: 245MG PER DAY
     Route: 048
     Dates: start: 20050515, end: 20050720
  4. FUZEON [Suspect]
     Indication: HIV INFECTION
     Dosage: 180MG PER DAY
     Route: 048
     Dates: start: 20050121, end: 20050720
  5. EPIVIR [Concomitant]
     Indication: HIV INFECTION
     Route: 065
     Dates: start: 20010901, end: 20050101
  6. VIRAMUNE [Concomitant]
     Indication: HIV INFECTION
     Route: 065
     Dates: start: 20010901, end: 20050101
  7. HIVID [Concomitant]
     Indication: HIV INFECTION
     Route: 065
     Dates: start: 20010901, end: 20050101
  8. VIRACEPT [Concomitant]
     Indication: HIV INFECTION
     Route: 065
     Dates: start: 20010901, end: 20050101
  9. KALETRA [Concomitant]
     Indication: HIV INFECTION
     Route: 065
     Dates: start: 20010901, end: 20050501
  10. GENTAMYCIN SULFATE [Concomitant]
     Route: 065

REACTIONS (4)
  - CARDIOGENIC SHOCK [None]
  - CARDIOMYOPATHY [None]
  - MULTI-ORGAN FAILURE [None]
  - PNEUMONIA [None]
